FAERS Safety Report 8514297-X (Version None)
Quarter: 2012Q3

REPORT INFORMATION
  Report Type: 
  Country: None (occurrence: None)
  Receive Date: 20120717
  Receipt Date: 20120713
  Transmission Date: 20120928
  Serious: Yes (Hospitalization)
  Sender: FDA-Public Use
  Company Number: FR-SANOFI-AVENTIS-2012SA049933

PATIENT
  Age: 43 Year
  Sex: Female
  Weight: 83 kg

DRUGS (20)
  1. ZOLPIDEM TARTRATE [Suspect]
     Route: 048
     Dates: end: 20111118
  2. EUPRESSYL [Suspect]
     Route: 048
  3. VENTOLIN [Concomitant]
  4. VALPROIC ACID [Suspect]
     Route: 048
     Dates: end: 20111118
  5. PAROXETINE [Suspect]
     Route: 065
     Dates: end: 20111118
  6. SULFARLEM [Concomitant]
     Dates: end: 20111118
  7. LEPTICUR [Concomitant]
     Dates: end: 20111118
  8. LYRICA [Concomitant]
  9. GLUCOPHAGE [Suspect]
     Route: 048
  10. RABEPRAZOLE SODIUM [Suspect]
     Route: 048
  11. ACAMPROSATE CALCIUM [Concomitant]
  12. THERALENE [Concomitant]
     Dates: end: 20111118
  13. ATORVASTATIN [Suspect]
     Route: 048
     Dates: end: 20120118
  14. LITHIUM CARBONATE [Concomitant]
     Dates: end: 20111118
  15. FLUTICASONE PROPIONATE/SALMETEROL [Concomitant]
  16. ALFUZOSIN HYDROCHLORIDE [Suspect]
     Route: 048
  17. QUETIAPINE [Suspect]
     Route: 048
     Dates: end: 20120129
  18. VALIUM [Concomitant]
     Dates: end: 20111118
  19. CORDARONE [Suspect]
     Indication: ATRIAL FIBRILLATION
     Route: 048
     Dates: end: 20120125
  20. TERCIAN [Suspect]
     Route: 048
     Dates: end: 20111118

REACTIONS (2)
  - CHOLESTASIS [None]
  - CYTOLYTIC HEPATITIS [None]
